FAERS Safety Report 9291229 (Version 2)
Quarter: 2013Q2

REPORT INFORMATION
  Report Type: Spontaneous
  Country: US (occurrence: US)
  Receive Date: 20130515
  Receipt Date: 20130605
  Transmission Date: 20140414
  Serious: No
  Sender: FDA-Public Use
  Company Number: US-PFIZER INC-2013146596

PATIENT
  Age: 78 Year
  Sex: Female
  Weight: 62.59 kg

DRUGS (3)
  1. ESTRING [Suspect]
     Indication: BLADDER DISORDER
     Dosage: 2 MG, UNK
     Route: 067
  2. AMLODIPINE [Concomitant]
     Indication: HYPERTENSION
     Dosage: 2.5 MG, 1X/DAY
  3. LOSARTAN [Concomitant]
     Indication: HYPERTENSION
     Dosage: 100 MG, 1X/DAY

REACTIONS (2)
  - Drug effect incomplete [Unknown]
  - Body height decreased [Unknown]
